FAERS Safety Report 4141783 (Version 3)
Quarter: 2020Q3

REPORT INFORMATION
  Report Type: Report from Study
  Country: US (occurrence: US)
  Receive Date: 20040512
  Receipt Date: 20050214
  Transmission Date: 20201104
  Serious: Yes (Hospitalization)
  Sender: FDA-Public Use
  Company Number: US-JNJFOC-20040406335

PATIENT
  Age: 70 Year
  Sex: Male

DRUGS (13)
  1. INFLIXIMAB [Suspect]
     Active Substance: INFLIXIMAB
     Route: 042
  2. ASA [Concomitant]
     Active Substance: ASPIRIN
     Route: 049
  3. SEREVENT DISKUS [Concomitant]
     Active Substance: SALMETEROL XINAFOATE
     Route: 055
  4. INFLIXIMAB [Suspect]
     Active Substance: INFLIXIMAB
     Route: 042
  5. INFLIXIMAB [Suspect]
     Active Substance: INFLIXIMAB
     Route: 042
  6. TYLENOL [Concomitant]
     Active Substance: ACETAMINOPHEN
     Route: 049
  7. INFLIXIMAB [Suspect]
     Active Substance: INFLIXIMAB
     Route: 042
  8. INFLIXIMAB [Suspect]
     Active Substance: INFLIXIMAB
     Route: 042
  9. ASACOL [Concomitant]
     Active Substance: MESALAMINE
     Route: 049
  10. ALBUTEROL. [Concomitant]
     Active Substance: ALBUTEROL
     Route: 055
  11. LYSINE [Concomitant]
     Active Substance: LYSINE
     Route: 049
  12. INFLIXIMAB [Suspect]
     Active Substance: INFLIXIMAB
     Route: 042
  13. POTASSIUM CHLORIDE. [Concomitant]
     Active Substance: POTASSIUM CHLORIDE
     Route: 049

REACTIONS (7)
  - Chronic obstructive pulmonary disease [Recovered/Resolved]
  - Arthralgia [None]
  - Drug ineffective [None]
  - Pneumonia [Recovered/Resolved]
  - Myalgia [None]
  - Infection [None]
  - Pneumonia [None]

NARRATIVE: CASE EVENT DATE: 20040425
